FAERS Safety Report 26165938 (Version 1)
Quarter: 2025Q4

REPORT INFORMATION
  Report Type: Report from Study
  Country: US (occurrence: US)
  Receive Date: 20251216
  Receipt Date: 20251216
  Transmission Date: 20260119
  Serious: Yes (Other)
  Sender: NEUROCRINE BIOSCIENCES
  Company Number: US-NBI-NBI-US-6144-2025

PATIENT
  Sex: Female
  Weight: 92.385 kg

DRUGS (3)
  1. CRINECERFONT [Suspect]
     Active Substance: CRINECERFONT
     Indication: Adrenogenital syndrome
     Dosage: 100 MILLIGRAM, BID
     Route: 061
  2. FLUDROCORTISONE [Concomitant]
     Active Substance: FLUDROCORTISONE
  3. PREDNISONE [Concomitant]
     Active Substance: PREDNISONE

REACTIONS (2)
  - Suicidal ideation [Unknown]
  - Vomiting [Unknown]
